FAERS Safety Report 4340911-9 (Version None)
Quarter: 2004Q2

REPORT INFORMATION
  Report Type: 
  Country: None (occurrence: None)
  Receive Date: 20040413
  Receipt Date: 20040402
  Transmission Date: 20050107
  Serious: Yes (Hospitalization)
  Sender: FDA-Public Use
  Company Number: 2004207605FR

PATIENT
  Age: 75 Year
  Sex: Male

DRUGS (1)
  1. ALDACTONE [Suspect]
     Indication: HYPERTENSION
     Dosage: 75 MG, DAILY, ORAL
     Route: 048

REACTIONS (1)
  - PEMPHIGOID [None]
